FAERS Safety Report 8817458 (Version 3)
Quarter: 2012Q4

REPORT INFORMATION
  Report Type: 
  Country: BR (occurrence: BR)
  Receive Date: 20121001
  Receipt Date: 20121119
  Transmission Date: 20130627
  Serious: Yes (Hospitalization, Other)
  Sender: FDA-Public Use
  Company Number: BR-BAYER-2012-100248

PATIENT
  Age: 53 Year
  Sex: Female

DRUGS (7)
  1. BETAFERON [Suspect]
     Indication: RELAPSING-REMITTING MULTIPLE SCLEROSIS
     Dosage: 1 ml, UNK
     Route: 058
     Dates: start: 20120120, end: 20120727
  2. CAPTOPRIL [Concomitant]
     Indication: BLOOD PRESSURE HIGH
     Dosage: 50 mg, TID
     Route: 048
  3. HYDROCHLOROTHIAZIDE [Concomitant]
     Indication: BLOOD PRESSURE HIGH
     Dosage: 50 mg, QD
     Route: 048
  4. OMEPRAZOLE [Concomitant]
     Indication: GASTRIC DISORDER
     Dosage: 20 mg, BID
     Route: 048
     Dates: start: 2006
  5. ATENOLOL [Concomitant]
     Indication: BLOOD PRESSURE HIGH
     Dosage: 25 mg, QD
     Route: 048
     Dates: start: 200602
  6. GABAPENTIN [Concomitant]
     Indication: SPINAL DISORDER
     Dosage: 300 mg, BID
     Route: 048
     Dates: start: 201207
  7. ALPRAZOLAM [Concomitant]
     Indication: SLEEP DISORDER THERAPY
     Dosage: 1 DF, PRN
     Route: 048
     Dates: start: 201207

REACTIONS (13)
  - Helicobacter infection [Recovered/Resolved]
  - Skin infection [Recovering/Resolving]
  - Injection site discolouration [Not Recovered/Not Resolved]
  - Multiple sclerosis relapse [Unknown]
  - Skin necrosis [Recovering/Resolving]
  - Gastritis [Recovered/Resolved]
  - Hiatus hernia [Not Recovered/Not Resolved]
  - Back pain [Recovering/Resolving]
  - Gait disturbance [Recovered/Resolved]
  - Skin discolouration [Recovering/Resolving]
  - Abdominal pain [Recovering/Resolving]
  - Impaired healing [Recovering/Resolving]
  - Vomiting [Recovered/Resolved]
